FAERS Safety Report 6770233-8 (Version None)
Quarter: 2010Q2

REPORT INFORMATION
  Report Type: 
  Country: None (occurrence: None)
  Receive Date: 20100615
  Receipt Date: 20100531
  Transmission Date: 20101027
  Serious: Yes (Other)
  Sender: FDA-Public Use
  Company Number: GR-PFIZER INC-2010067937

PATIENT
  Age: 19 Year
  Sex: Female

DRUGS (2)
  1. SUNITINIB MALATE [Suspect]
     Indication: RENAL CANCER
     Dosage: 50 MG, 1X/DAY
     Dates: start: 20090715
  2. CISPLATIN [Suspect]
     Indication: RENAL CANCER
     Dosage: 100 MG/M2, EVERY 3 WEEKS
     Dates: start: 20090715

REACTIONS (1)
  - GINGIVITIS ULCERATIVE [None]
